FAERS Safety Report 14346711 (Version 2)
Quarter: 2018Q1

REPORT INFORMATION
  Report Type: Spontaneous
  Country: US (occurrence: US)
  Receive Date: 20180103
  Receipt Date: 20180313
  Transmission Date: 20180509
  Serious: No
  Sender: FDA-Public Use
  Company Number: US-TEVA-2017-US-837997

PATIENT
  Sex: Male

DRUGS (1)
  1. AZITHROMYCIN ANHYDROUS. [Suspect]
     Active Substance: AZITHROMYCIN ANHYDROUS
     Dosage: 200 MG/5 ML; 22 ML SUSPENSION

REACTIONS (3)
  - Glossodynia [Recovered/Resolved]
  - Intentional product use issue [Recovered/Resolved]
  - Hypoaesthesia oral [Recovered/Resolved]
